APPROVED DRUG PRODUCT: RESTORIL
Active Ingredient: TEMAZEPAM
Strength: 7.5MG
Dosage Form/Route: CAPSULE;ORAL
Application: N018163 | Product #003 | TE Code: AB
Applicant: SPECGX LLC
Approved: Oct 25, 1991 | RLD: Yes | RS: No | Type: RX